FAERS Safety Report 8465112 (Version 3)
Quarter: 2013Q1

REPORT INFORMATION
  Report Type: Spontaneous
  Country: US (occurrence: US)
  Receive Date: 20120319
  Receipt Date: 20130117
  Transmission Date: 20140127
  Serious: Yes (Hospitalization)
  Sender: FDA-Public Use
  Company Number: US-B.I. PHARMACEUTICALS,INC./RIDGEFIELD-2012-BP-04795BP

PATIENT
  Age: 74 Year
  Sex: Male
  Weight: 79.38 kg

DRUGS (10)
  1. PRADAXA [Suspect]
     Indication: ATRIAL FIBRILLATION
     Dosage: 300 MG
     Route: 048
     Dates: start: 20110722, end: 20111204
  2. PRADAXA [Suspect]
     Indication: ATRIAL FLUTTER
  3. MICARDIS [Concomitant]
     Dosage: 40 MG
     Route: 048
     Dates: start: 1992
  4. NEXIUM [Concomitant]
     Dosage: 40 MG
     Route: 048
     Dates: start: 2006
  5. SULFASALAZIN [Concomitant]
     Dates: start: 2006
  6. ALLOPURINOL [Concomitant]
     Dosage: 200 MG
     Route: 048
     Dates: start: 2006
  7. CARDIZEM [Concomitant]
     Dosage: 120 MG
     Route: 048
     Dates: start: 2011
  8. DRONEDARONE [Concomitant]
     Dosage: 400 MG
     Route: 048
  9. BIFIDOBACTERIUM INFANTIS [Concomitant]
  10. HYZAAR [Concomitant]
     Dates: start: 2003, end: 2011

REACTIONS (3)
  - Gastrointestinal haemorrhage [Unknown]
  - Pain [Unknown]
  - Emotional distress [Unknown]
